FAERS Safety Report 5780692-5 (Version None)
Quarter: 2008Q2

REPORT INFORMATION
  Report Type: 
  Country: None (occurrence: None)
  Receive Date: 20080620
  Receipt Date: 20080604
  Transmission Date: 20081010
  Serious: No
  Sender: FDA-Public Use
  Company Number: US-BOEHRINGER INGELHEIM GMBH, GERMANY-2008-BP-04295BP

PATIENT
  Age: 59 Year
  Sex: Female

DRUGS (5)
  1. MIRAPEX [Suspect]
     Indication: PARKINSON'S DISEASE
  2. SYNTHROID [Concomitant]
  3. METAMORFIN [Concomitant]
  4. SELEGILINE HCL [Concomitant]
  5. CARBIDOPA AND LEVODOPA [Concomitant]

REACTIONS (5)
  - GAMBLING [None]
  - JOINT SWELLING [None]
  - LIBIDO INCREASED [None]
  - OEDEMA PERIPHERAL [None]
  - WEIGHT INCREASED [None]
